FAERS Safety Report 13183110 (Version 1)
Quarter: 2017Q1

REPORT INFORMATION
  Report Type: Spontaneous
  Country: US (occurrence: US)
  Receive Date: 20170203
  Receipt Date: 20170203
  Transmission Date: 20170428
  Serious: Yes (Hospitalization, Disabling)
  Sender: FDA-Public Use
  Company Number: US-PFIZER INC-2017046412

PATIENT
  Age: 58 Year
  Sex: Female
  Weight: 94 kg

DRUGS (2)
  1. DOXEPIN HCL [Suspect]
     Active Substance: DOXEPIN HYDROCHLORIDE
     Indication: DEPRESSION
     Dosage: 1-2 CAPSULES, 1X/DAY (BEDTIME)
     Dates: start: 20120319
  2. DOXEPIN HCL [Suspect]
     Active Substance: DOXEPIN HYDROCHLORIDE
     Indication: INSOMNIA
     Dosage: UNK
     Dates: start: 20120412

REACTIONS (11)
  - Balance disorder [Unknown]
  - Eye pain [Unknown]
  - Fall [Unknown]
  - Ankle fracture [Unknown]
  - Mood swings [Unknown]
  - Movement disorder [Unknown]
  - Muscle twitching [Unknown]
  - Pruritus [Unknown]
  - Syncope [Unknown]
  - Tremor [Unknown]
  - Rash [Unknown]
